FAERS Safety Report 8397102-4 (Version None)
Quarter: 2012Q2

REPORT INFORMATION
  Report Type: 
  Country: None (occurrence: None)
  Receive Date: 20120530
  Receipt Date: 20120522
  Transmission Date: 20120825
  Serious: Yes (Other)
  Sender: FDA-Public Use
  Company Number: BE-UCBSA-057964

PATIENT
  Age: 90 Year
  Sex: Female

DRUGS (2)
  1. KEPPRA [Suspect]
     Dates: start: 20100101
  2. KEPPRA [Suspect]
     Indication: EPILEPSY
     Dates: start: 20110101

REACTIONS (1)
  - PEMPHIGOID [None]
